FAERS Safety Report 5296204-9 (Version None)
Quarter: 2007Q2

REPORT INFORMATION
  Report Type: 
  Country: None (occurrence: None)
  Receive Date: 20070413
  Receipt Date: 20070410
  Transmission Date: 20071010
  Serious: Yes (Other)
  Sender: FDA-Public Use
  Company Number: JP-JPN-A200701212

PATIENT
  Age: 73 Year
  Sex: Female

DRUGS (1)
  1. VALTREX [Suspect]
     Indication: HERPES SIMPLEX
     Dosage: .5G TWICE PER DAY
     Route: 048
     Dates: start: 20070315, end: 20070317

REACTIONS (3)
  - ATONIC SEIZURES [None]
  - DYSARTHRIA [None]
  - HYPOAESTHESIA [None]
